FAERS Safety Report 26140012 (Version 1)
Quarter: 2025Q4

REPORT INFORMATION
  Report Type: Spontaneous
  Country: US (occurrence: None)
  Receive Date: 20251209
  Receipt Date: 20251209
  Transmission Date: 20260117
  Serious: Yes (Other)
  Sender: FDA-CTU
  Company Number: None

PATIENT
  Age: 81 Year
  Sex: Female
  Weight: 52.65 kg

DRUGS (7)
  1. PREGABALIN [Suspect]
     Active Substance: PREGABALIN
     Indication: Back pain
     Dosage: OTHER QUANTITY : 1 CAPSULE(S);?FREQUENCY : DAILY;
     Route: 048
     Dates: start: 20251203, end: 20251203
  2. PREGABALIN [Suspect]
     Active Substance: PREGABALIN
     Indication: Arthralgia
  3. METOPROLOL [Concomitant]
     Active Substance: METOPROLOL
  4. LOSARTAN [Concomitant]
     Active Substance: LOSARTAN
  5. OMEPRAZOLE [Concomitant]
     Active Substance: OMEPRAZOLE
  6. EZETIMIBE [Concomitant]
     Active Substance: EZETIMIBE
  7. VITAMIN D [Concomitant]
     Active Substance: VITAMIN D NOS

REACTIONS (13)
  - Renal disorder [None]
  - Pollakiuria [None]
  - Panic disorder [None]
  - Anxiety [None]
  - Gait disturbance [None]
  - Paraesthesia [None]
  - Muscular weakness [None]
  - Confusional state [None]
  - Headache [None]
  - Facial pain [None]
  - Pain in jaw [None]
  - Dehydration [None]
  - Sleep apnoea syndrome [None]

NARRATIVE: CASE EVENT DATE: 20251203
